FAERS Safety Report 15931944 (Version 2)
Quarter: 2019Q1

REPORT INFORMATION
  Report Type: Spontaneous
  Country: CN (occurrence: CN)
  Receive Date: 20190207
  Receipt Date: 20190220
  Transmission Date: 20190417
  Serious: Yes (Death, Life-Threatening)
  Sender: FDA-Public Use
  Company Number: CN-ROCHE-2251409

PATIENT
  Age: 71 Year
  Sex: Female
  Weight: 39 kg

DRUGS (3)
  1. ACTILYSE [Suspect]
     Active Substance: ALTEPLASE
     Indication: ISCHAEMIC STROKE
     Route: 042
     Dates: start: 20170319, end: 20170319
  2. ACTILYSE [Suspect]
     Active Substance: ALTEPLASE
     Route: 042
     Dates: start: 20170319, end: 20170319
  3. URAPIDIL [Concomitant]
     Active Substance: URAPIDIL
     Indication: HYPERTENSION
     Route: 065
     Dates: start: 20170319, end: 20170319

REACTIONS (5)
  - Intentional product use issue [Fatal]
  - Off label use [Fatal]
  - Brain stem haemorrhage [Fatal]
  - Respiratory depression [Unknown]
  - Pneumonia aspiration [Unknown]

NARRATIVE: CASE EVENT DATE: 20170319
